FAERS Safety Report 19065916 (Version 1)
Quarter: 2021Q1

REPORT INFORMATION
  Report Type: Report from Study
  Country: CA (occurrence: CA)
  Receive Date: 20210327
  Receipt Date: 20210327
  Transmission Date: 20210420
  Serious: Yes (Hospitalization, Other)
  Sender: FDA-Public Use
  Company Number: NVSC2021CA066195

PATIENT
  Age: 44 Year
  Sex: Female

DRUGS (1)
  1. ILARIS [Suspect]
     Active Substance: CANAKINUMAB
     Indication: MUCKLE-WELLS SYNDROME
     Dosage: 150 MG, 8 WEEKS
     Route: 058
     Dates: start: 20141209

REACTIONS (10)
  - Acute kidney injury [Unknown]
  - Fatigue [Recovered/Resolved]
  - Pyrexia [Recovered/Resolved]
  - Product dose omission issue [Unknown]
  - Abscess [Unknown]
  - Deafness [Recovered/Resolved]
  - Urticaria [Recovered/Resolved]
  - Cellulitis [Unknown]
  - Urticaria [Unknown]
  - Septic shock [Unknown]

NARRATIVE: CASE EVENT DATE: 202003
